FAERS Safety Report 8889389 (Version 1)
Quarter: 2012Q4

REPORT INFORMATION
  Report Type: Spontaneous
  Country: US (occurrence: None)
  Receive Date: 20121102
  Receipt Date: 20121102
  Transmission Date: 20130627
  Serious: Yes (Hospitalization)
  Sender: FDA-Public Use
  Company Number: None

PATIENT
  Age: 2 Month
  Sex: Male
  Weight: 4.89 kg

DRUGS (2)
  1. CEFTRIAXONE [Suspect]
     Indication: ESCHERICHIA COLI BACTEREMIA
     Route: 040
     Dates: start: 20121022, end: 20121029
  2. CEFTRIAXONE [Suspect]
     Indication: ESCHERICHIA COLI BACTEREMIA

REACTIONS (1)
  - Thrombocytopenia [None]
